FAERS Safety Report 14413084 (Version 1)
Quarter: 2018Q1

REPORT INFORMATION
  Report Type: Spontaneous
  Country: US (occurrence: US)
  Receive Date: 20180119
  Receipt Date: 20180119
  Transmission Date: 20180509
  Serious: Yes (Hospitalization)
  Sender: FDA-Public Use
  Company Number: None

PATIENT
  Age: 72 Year
  Sex: Male
  Weight: 104.4 kg

DRUGS (13)
  1. NEURONTIN [Concomitant]
     Active Substance: GABAPENTIN
  2. SYNTHROID [Concomitant]
     Active Substance: LEVOTHYROXINE SODIUM
  3. MAGOX [Concomitant]
  4. COZAAR [Concomitant]
     Active Substance: LOSARTAN POTASSIUM
  5. ASPIRIN. [Suspect]
     Active Substance: ASPIRIN
     Indication: PULMONARY EMBOLISM
     Dosage: 81MG QPM PO
     Route: 048
  6. OSCAL [Concomitant]
     Active Substance: CALCIUM CARBONATE
  7. CELEXA [Concomitant]
     Active Substance: CITALOPRAM HYDROBROMIDE
  8. WARFARIN [Suspect]
     Active Substance: WARFARIN
     Indication: DEEP VEIN THROMBOSIS
     Dosage: 5MG NIGHTLY PO
     Route: 048
  9. ASPIRIN. [Suspect]
     Active Substance: ASPIRIN
     Indication: DEEP VEIN THROMBOSIS
     Dosage: 81MG QPM PO
     Route: 048
  10. WARFARIN [Suspect]
     Active Substance: WARFARIN
     Indication: PULMONARY EMBOLISM
     Dosage: 5MG NIGHTLY PO
     Route: 048
  11. LANTUS [Concomitant]
     Active Substance: INSULIN GLARGINE
  12. CALCITROL [Concomitant]
     Active Substance: CALCITRIOL
  13. NOVOLOG [Concomitant]
     Active Substance: INSULIN ASPART

REACTIONS (5)
  - Diverticulum intestinal [None]
  - Anticoagulation drug level above therapeutic [None]
  - Lower gastrointestinal haemorrhage [None]
  - Large intestine polyp [None]
  - Therapy cessation [None]

NARRATIVE: CASE EVENT DATE: 20171010
